FAERS Safety Report 9036218 (Version 1)
Quarter: 2013Q1

REPORT INFORMATION
  Report Type: Spontaneous
  Country: TR (occurrence: None)
  Receive Date: 20130114
  Receipt Date: 20130114
  Transmission Date: 20140127
  Serious: Yes (Other)
  Sender: FDA-Public Use
  Company Number: 2013P1000043

PATIENT
  Age: 35 Year
  Sex: Male

DRUGS (3)
  1. LIDOCAINE [Suspect]
     Indication: LOCAL ANAESTHESIA
  2. LIDOCAINE [Suspect]
     Indication: NASAL SEPTAL OPERATION
  3. EPINEPHRINE [Concomitant]

REACTIONS (6)
  - Blindness transient [None]
  - Ophthalmoplegia [None]
  - Eye pain [None]
  - Pupils unequal [None]
  - Eyelid ptosis [None]
  - Wrong technique in drug usage process [None]
